FAERS Safety Report 7936324-0 (Version None)
Quarter: 2011Q4

REPORT INFORMATION
  Report Type: 
  Country: None (occurrence: None)
  Receive Date: 20111121
  Receipt Date: 20111114
  Transmission Date: 20120403
  Serious: Yes (Hospitalization, Other)
  Sender: FDA-Public Use
  Company Number: AUR-APL-2011-05840

PATIENT
  Age: 83 Year
  Sex: Female

DRUGS (9)
  1. ALISKIREN (ALISKIREN) [Concomitant]
  2. LEVOTHYROXINE SODIUM [Concomitant]
  3. RAMIPRIL [Suspect]
     Indication: PRODUCT USED FOR UNKNOWN INDICATION
     Dosage: 10 MG 1 D, ORAL
     Route: 048
     Dates: end: 20110716
  4. HYDROCHLOROTHIAZIDE [Suspect]
     Indication: PRODUCT USED FOR UNKNOWN INDICATION
     Dosage: 25 MG, 1 D, ORAL
     Route: 048
  5. NITRENDIPINE (NITRENDIPINE) [Concomitant]
  6. CITALOPRAM HYDROBROMIDE [Suspect]
     Indication: PRODUCT USED FOR UNKNOWN INDICATION
     Dosage: 20 MG, 1 D, ORAL
     Route: 048
     Dates: start: 20110603, end: 20110701
  7. FORMOTEROL FUMARATE [Concomitant]
  8. TIOTROPIUM (TIOTROPIUM) [Concomitant]
  9. ASPIRIN [Concomitant]

REACTIONS (2)
  - CONDITION AGGRAVATED [None]
  - HYPONATRAEMIA [None]
